FAERS Safety Report 5241270-X (Version None)
Quarter: 2007Q1

REPORT INFORMATION
  Report Type: 
  Country: None (occurrence: None)
  Receive Date: 20070215
  Receipt Date: 20070215
  Transmission Date: 20070707
  Serious: No
  Sender: FDA-Public Use
  Company Number: None

PATIENT
  Sex: Female

DRUGS (1)
  1. TUBERCULIN, PURIFIED PROTEIN DERIVATIVE PARKEDALE PHARMACEUTICALS [Suspect]
     Dosage: 5TU/0.1 ML ANNUAL INTRADERMAL
     Route: 023
     Dates: start: 20061212

REACTIONS (3)
  - ERYTHEMA [None]
  - PRURITUS [None]
  - SKIN DISCOLOURATION [None]
